FAERS Safety Report 8232694-7 (Version None)
Quarter: 2012Q1

REPORT INFORMATION
  Report Type: 
  Country: None (occurrence: None)
  Receive Date: 20120323
  Receipt Date: 20120316
  Transmission Date: 20120608
  Serious: Yes (Hospitalization, Other)
  Sender: FDA-Public Use
  Company Number: PHHY2012IT010105

PATIENT
  Sex: Male

DRUGS (11)
  1. SIMVASTATIN [Suspect]
     Indication: DYSLIPIDAEMIA
     Dosage: 20 MG, QD
     Route: 048
     Dates: start: 20090101, end: 20120116
  2. ALLOPURINOL [Concomitant]
     Dosage: UNK UKN, UNK
  3. LASIX [Concomitant]
     Dosage: UNK UKN, UNK
  4. ASPIRIN [Concomitant]
     Dosage: UNK UKN, UNK
  5. IVABRADINE [Concomitant]
     Dosage: UNK UKN, UNK
  6. CYCLOSPORINE [Concomitant]
     Dosage: 35 MG, UNK
  7. VANCOMYCIN [Concomitant]
     Indication: HYPERPYREXIA
     Dosage: 750 MG, UNK
     Route: 042
     Dates: start: 20111226, end: 20120117
  8. DOXYCYCLINE HYCLATE [Concomitant]
     Dosage: 100 MG, 2 POSOLOGIC UNIT
     Route: 048
     Dates: start: 20120102, end: 20120117
  9. MYCOSTATIN [Concomitant]
     Dosage: 100000 IU/ML,  4 POSOLOGIC UNIT
     Route: 048
  10. CERTICAN [Suspect]
     Indication: HEART TRANSPLANT
     Dosage: 0.25 MG, ONE POSOLOGIC UNIT
     Route: 048
     Dates: start: 20111116
  11. IMIPENEM [Concomitant]
     Indication: HYPERPYREXIA
     Dosage: 1500 MG, UNK
     Dates: start: 20111226, end: 20120117

REACTIONS (8)
  - BLOOD CREATININE INCREASED [None]
  - BLOOD UREA INCREASED [None]
  - MYALGIA [None]
  - BLOOD CREATINE PHOSPHOKINASE INCREASED [None]
  - ANURIA [None]
  - RHABDOMYOLYSIS [None]
  - ASPARTATE AMINOTRANSFERASE INCREASED [None]
  - ALANINE AMINOTRANSFERASE INCREASED [None]
